FAERS Safety Report 7681796-2 (Version None)
Quarter: 2011Q3

REPORT INFORMATION
  Report Type: 
  Country: None (occurrence: None)
  Receive Date: 20110812
  Receipt Date: 20110808
  Transmission Date: 20111222
  Serious: Yes (Other)
  Sender: FDA-Public Use
  Company Number: US-CEPHALON-US017272

PATIENT
  Sex: Female
  Weight: 59 kg

DRUGS (9)
  1. HYDROXYZINE [Concomitant]
     Indication: SLEEP DISORDER THERAPY
     Route: 048
     Dates: start: 20040101
  2. LAMICTAL [Concomitant]
     Indication: HEADACHE
     Route: 048
     Dates: start: 20050101
  3. SEASONALE [Concomitant]
     Indication: ORAL CONTRACEPTION
     Route: 048
  4. PROVIGIL [Suspect]
     Indication: CHRONIC FATIGUE SYNDROME
     Route: 048
     Dates: start: 20060318, end: 20060328
  5. LYRICA [Suspect]
     Indication: HEADACHE
     Route: 048
     Dates: start: 20050901
  6. LYRICA [Suspect]
     Indication: ANALGESIC THERAPY
  7. MULTI-VITAMIN [Concomitant]
     Indication: MEDICAL DIET
     Route: 048
  8. VALIUM [Concomitant]
     Indication: CHRONIC FATIGUE SYNDROME
     Route: 048
  9. WELLBUTRIN [Concomitant]
     Indication: DEPRESSION
     Route: 048
     Dates: start: 20040101

REACTIONS (3)
  - APHASIA [None]
  - TREMOR [None]
  - DYSPHEMIA [None]
